FAERS Safety Report 6148343-8 (Version None)
Quarter: 2009Q2

REPORT INFORMATION
  Report Type: 
  Country: None (occurrence: None)
  Receive Date: 20090406
  Receipt Date: 20090324
  Transmission Date: 20091009
  Serious: Yes (Hospitalization)
  Sender: FDA-Public Use
  Company Number: SPV1-2009-00541

PATIENT
  Age: 66 Year
  Sex: Female

DRUGS (3)
  1. FOSRENOL [Suspect]
     Indication: HYPERPHOSPHATAEMIA
     Dosage: 2000 MG, 3X/DAY:TID, ORAL
     Route: 048
  2. INSULIN (INSULIN) [Concomitant]
  3. ASPIRIN [Concomitant]

REACTIONS (5)
  - ANEURYSM [None]
  - CATHETER RELATED COMPLICATION [None]
  - DIALYSIS [None]
  - FLUID OVERLOAD [None]
  - PNEUMONIA [None]
